FAERS Safety Report 6523957-1 (Version None)
Quarter: 2009Q4

REPORT INFORMATION
  Report Type: 
  Country: None (occurrence: None)
  Receive Date: 20091231
  Receipt Date: 20091223
  Transmission Date: 20100525
  Serious: Yes (Hospitalization, Other)
  Sender: FDA-Public Use
  Company Number: US-BRISTOL-MYERS SQUIBB COMPANY-14909527

PATIENT
  Age: 49 Year
  Sex: Male

DRUGS (3)
  1. ABILIFY [Suspect]
     Indication: BIPOLAR DISORDER
     Dates: start: 20090827, end: 20091007
  2. MINIPRESS [Concomitant]
  3. LAMOTRIGINE [Concomitant]

REACTIONS (2)
  - PRIAPISM [None]
  - SEXUAL DYSFUNCTION [None]
